FAERS Safety Report 10055486 (Version 1)
Quarter: 2014Q2

REPORT INFORMATION
  Report Type: Spontaneous
  Country: FR (occurrence: FR)
  Receive Date: 20140403
  Receipt Date: 20140403
  Transmission Date: 20141212
  Serious: Yes (Hospitalization)
  Sender: FDA-Public Use
  Company Number: FR-ROCHE-1369825

PATIENT
  Age: 69 Year
  Sex: Male

DRUGS (19)
  1. AVASTIN [Suspect]
     Indication: RECTAL CANCER METASTATIC
     Dosage: 7TH COURSE
     Route: 041
     Dates: start: 20140130, end: 20140130
  2. CAMPTO [Suspect]
     Indication: RECTAL CANCER METASTATIC
     Dosage: 7TH COURSE
     Route: 041
     Dates: start: 20140130, end: 20140130
  3. FLUOROURACILE [Suspect]
     Indication: RECTAL CANCER METASTATIC
     Dosage: 7TH COURSE
     Route: 041
     Dates: start: 20140130, end: 20140130
  4. IRINOTECAN [Concomitant]
     Dosage: 3 COURSES
     Route: 065
     Dates: start: 200609, end: 200610
  5. IRINOTECAN [Concomitant]
     Dosage: 6 COURSES
     Route: 065
     Dates: start: 200804, end: 200806
  6. FOLINIC ACID [Concomitant]
     Dosage: 3 COURSES
     Route: 065
     Dates: start: 200609, end: 200610
  7. FOLINIC ACID [Concomitant]
     Route: 065
     Dates: start: 201203, end: 201206
  8. LEUCOVORIN [Concomitant]
     Dosage: 9 COURSES
     Route: 065
     Dates: end: 201101
  9. LEUCOVORIN [Concomitant]
     Dosage: 6 COURSES
     Route: 065
     Dates: start: 200804, end: 200806
  10. LEUCOVORIN [Concomitant]
     Dosage: 6 COURSES
     Route: 065
     Dates: start: 200904, end: 200908
  11. LEUCOVORIN [Concomitant]
     Dosage: 9 COURSES
     Route: 065
     Dates: start: 201106, end: 201111
  12. OXALIPLATIN [Concomitant]
     Dosage: 6 COURSES
     Route: 065
     Dates: start: 200804, end: 200806
  13. OXALIPLATIN [Concomitant]
     Dosage: 6 COURSES
     Route: 065
     Dates: start: 200904, end: 200908
  14. OXALIPLATIN [Concomitant]
     Dosage: 9 COURSES
     Route: 065
     Dates: start: 201106, end: 201111
  15. OXALIPLATIN [Concomitant]
     Route: 065
     Dates: start: 201203, end: 201206
  16. GEMCITABINE [Concomitant]
     Dosage: 6 COURSES
     Route: 065
     Dates: start: 200804, end: 200806
  17. GEMCITABINE [Concomitant]
     Dosage: 6 COURSES
     Route: 065
     Dates: start: 200904, end: 200908
  18. GEMCITABINE [Concomitant]
     Dosage: 9 COURSES
     Route: 065
     Dates: start: 201106, end: 201111
  19. GEMCITABINE [Concomitant]
     Route: 065
     Dates: start: 201203, end: 201206

REACTIONS (2)
  - Rectal haemorrhage [Not Recovered/Not Resolved]
  - Disease progression [Not Recovered/Not Resolved]
